FAERS Safety Report 7704507-0 (Version None)
Quarter: 2011Q3

REPORT INFORMATION
  Report Type: 
  Country: None (occurrence: None)
  Receive Date: 20110823
  Receipt Date: 20110819
  Transmission Date: 20111222
  Serious: Yes (Hospitalization)
  Sender: FDA-Public Use
  Company Number: GB-TEVA-286822ISR

PATIENT
  Age: 24 Year
  Sex: Male
  Weight: 59 kg

DRUGS (1)
  1. CITALOPRAM HYDROBROMIDE [Suspect]
     Indication: DEPRESSION
     Route: 048
     Dates: end: 20110510

REACTIONS (3)
  - DUODENAL PERFORATION [None]
  - DUODENAL ULCER [None]
  - ABDOMINAL PAIN [None]
